FAERS Safety Report 10078915 (Version 1)
Quarter: 2014Q2

REPORT INFORMATION
  Report Type: Spontaneous
  Country: CH (occurrence: CH)
  Receive Date: 20140415
  Receipt Date: 20140415
  Transmission Date: 20141212
  Serious: Yes (Other)
  Sender: FDA-Public Use
  Company Number: CH-TEVA-473026ISR

PATIENT
  Age: 78 Year
  Sex: Male

DRUGS (1)
  1. TERBINAFIN-MEPHA [Suspect]
     Indication: ONYCHOMYCOSIS
     Dosage: 250 MILLIGRAM DAILY;
     Route: 048
     Dates: start: 201312

REACTIONS (5)
  - Generalised erythema [Recovering/Resolving]
  - Rash pustular [Recovering/Resolving]
  - Pruritus generalised [Recovering/Resolving]
  - Dry skin [Recovering/Resolving]
  - Swelling [Recovering/Resolving]
